FAERS Safety Report 10010211 (Version 2)
Quarter: 2014Q1

REPORT INFORMATION
  Report Type: Spontaneous
  Country: US (occurrence: US)
  Receive Date: 20140312
  Receipt Date: 20140312
  Transmission Date: 20141002
  Serious: No
  Sender: FDA-Public Use
  Company Number: US-INCYTE CORPORATION-2013IN001216

PATIENT
  Age: 66 Year
  Sex: Male
  Weight: 120.18 kg

DRUGS (9)
  1. JAKAFI [Suspect]
     Indication: MYELOFIBROSIS
     Dosage: 20 MG, BID
     Route: 048
     Dates: start: 20130429
  2. JANUMET [Concomitant]
  3. PROPANOLOL [Concomitant]
  4. ASPIRIN [Concomitant]
  5. AMITRIPTYLINE [Concomitant]
  6. PRILOSEC [Concomitant]
  7. ALLOPURINOL [Concomitant]
  8. IRON [Concomitant]
  9. FOLIC ACID [Concomitant]

REACTIONS (4)
  - Headache [Not Recovered/Not Resolved]
  - Dizziness [Not Recovered/Not Resolved]
  - Contusion [Not Recovered/Not Resolved]
  - Therapeutic response unexpected [Unknown]
